FAERS Safety Report 9833289 (Version 1)
Quarter: 2014Q1

REPORT INFORMATION
  Report Type: Report from Study
  Country: DE (occurrence: DE)
  Receive Date: 20140121
  Receipt Date: 20140121
  Transmission Date: 20141002
  Serious: Yes (Congenital Anomaly)
  Sender: FDA-Public Use
  Company Number: DE-B.I. PHARMACEUTICALS,INC./RIDGEFIELD-2014-BI-01893GD

PATIENT
  Sex: 0

DRUGS (2)
  1. NEVIRAPINE [Suspect]
     Indication: EXPOSURE DURING PREGNANCY
     Route: 064
  2. ZIDOVUDINE W/LAMIVUDINE [Suspect]
     Indication: EXPOSURE DURING PREGNANCY
     Route: 064

REACTIONS (2)
  - Atrial septal defect [Unknown]
  - Dextrocardia [Unknown]
